FAERS Safety Report 6652376-2 (Version None)
Quarter: 2010Q1

REPORT INFORMATION
  Report Type: 
  Country: None (occurrence: None)
  Receive Date: 20100325
  Receipt Date: 20100318
  Transmission Date: 20100710
  Serious: Yes (Hospitalization)
  Sender: FDA-Public Use
  Company Number: JP-ROCHE-681978

PATIENT
  Age: 78 Year
  Sex: Male
  Weight: 37 kg

DRUGS (7)
  1. AVASTIN [Suspect]
     Indication: COLON CANCER
     Route: 041
     Dates: start: 20090616, end: 20091124
  2. IRINOTECAN HYDROCHLORIDE [Concomitant]
     Route: 041
  3. FLUOROURACIL [Concomitant]
     Route: 040
     Dates: start: 20090317, end: 20091124
  4. FLUOROURACIL [Concomitant]
     Route: 040
     Dates: end: 20091101
  5. LEVOFOLINATE [Concomitant]
     Route: 041
  6. ELPLAT [Concomitant]
     Route: 041
     Dates: start: 20090317, end: 20091124
  7. LEVOFOLINATE [Concomitant]
     Route: 041
     Dates: start: 20090317, end: 20091124

REACTIONS (3)
  - DECREASED APPETITE [None]
  - INTESTINAL OBSTRUCTION [None]
  - SUTURE RUPTURE [None]
